FAERS Safety Report 19917494 (Version 1)
Quarter: 2021Q4

REPORT INFORMATION
  Report Type: Spontaneous
  Country: LT (occurrence: LT)
  Receive Date: 20211005
  Receipt Date: 20211005
  Transmission Date: 20220304
  Serious: Yes (Hospitalization, Other)
  Sender: FDA-Public Use
  Company Number: LT-ELI_LILLY_AND_COMPANY-LT202104005317

PATIENT
  Age: 43 Year
  Sex: Female

DRUGS (21)
  1. OLANZAPINE [Suspect]
     Active Substance: OLANZAPINE
     Indication: Schizophrenia
     Dosage: 20 MILLIGRAM, ONCE A DAY
     Route: 065
  2. OLANZAPINE [Suspect]
     Active Substance: OLANZAPINE
     Dosage: 15 MILLIGRAM, ONCE A DAY
     Route: 065
  3. OLANZAPINE [Suspect]
     Active Substance: OLANZAPINE
     Dosage: UNK (DOSE DECREASED)
     Route: 065
  4. TRIHEXYPHENIDYL [Suspect]
     Active Substance: TRIHEXYPHENIDYL
     Indication: Schizophrenia
     Dosage: UNK
     Route: 065
  5. RISPERIDONE [Suspect]
     Active Substance: RISPERIDONE
     Indication: Schizophrenia
     Dosage: UNK, ONCE A DAY (4-6MG)
     Route: 065
  6. RISPERIDONE [Suspect]
     Active Substance: RISPERIDONE
     Indication: Schizoaffective disorder
     Dosage: UNK 2 WEEK(BIWEEKLY )
     Route: 065
  7. MEDAZEPAM [Suspect]
     Active Substance: MEDAZEPAM
     Indication: Schizoaffective disorder
     Dosage: UNK
     Route: 065
     Dates: start: 2014
  8. LORAZEPAM [Suspect]
     Active Substance: LORAZEPAM
     Indication: Schizophrenia
     Dosage: UNK
     Route: 065
  9. LORAZEPAM [Suspect]
     Active Substance: LORAZEPAM
     Indication: Schizoaffective disorder
  10. AMITRIPTYLINE [Suspect]
     Active Substance: AMITRIPTYLINE
     Indication: Schizoaffective disorder depressive type
     Dosage: UNK
     Route: 065
     Dates: start: 2014
  11. PERPHENAZINE [Suspect]
     Active Substance: PERPHENAZINE
     Indication: Schizoaffective disorder
     Dosage: UNK
     Route: 065
     Dates: start: 2014
  12. CLOMIPRAMINE [Suspect]
     Active Substance: CLOMIPRAMINE
     Indication: Schizophrenia
     Dosage: UNK
     Route: 065
  13. CLOMIPRAMINE [Suspect]
     Active Substance: CLOMIPRAMINE
     Indication: Schizoaffective disorder
  14. PALIPERIDONE PALMITATE [Suspect]
     Active Substance: PALIPERIDONE PALMITATE
     Indication: Schizophrenia
     Dosage: 100 MILLIGRAM 28 DAY (WAS ADMINISTERED EVERY 4 WEEKS)
     Route: 030
  15. TRIFLUOPERAZINE [Suspect]
     Active Substance: TRIFLUOPERAZINE HYDROCHLORIDE
     Indication: Schizoaffective disorder
     Dosage: UNK
     Route: 065
     Dates: start: 2014
  16. CHLORPROMAZINE [Concomitant]
     Active Substance: CHLORPROMAZINE
     Indication: Schizophrenia
     Dosage: 100 MILLIGRAM, ONCE A DAY (50 MG, BID)
     Route: 065
  17. CLONAZEPAM [Concomitant]
     Active Substance: CLONAZEPAM
     Indication: Hypertonia
     Dosage: 4 MILLIGRAM, ONCE A DAY
     Route: 065
     Dates: start: 2018
  18. CLONAZEPAM [Concomitant]
     Active Substance: CLONAZEPAM
     Indication: Muscle tightness
     Dosage: 3 MILLIGRAM, ONCE A DAY
     Route: 065
  19. CLONAZEPAM [Concomitant]
     Active Substance: CLONAZEPAM
     Indication: Irritability
     Dosage: UNK UNK, ONCE A DAY , 4 MG/3 MG/ 2MG
     Route: 065
     Dates: start: 2018
  20. CLONAZEPAM [Concomitant]
     Active Substance: CLONAZEPAM
     Indication: Hypertonia
     Dosage: UNK
     Route: 065
  21. CLONAZEPAM [Concomitant]
     Active Substance: CLONAZEPAM
     Dosage: 2 MILLIGRAM, ONCE A DAY
     Route: 065

REACTIONS (10)
  - Tardive dyskinesia [Recovering/Resolving]
  - Intentional product misuse [Unknown]
  - Onychophagia [Unknown]
  - Hair texture abnormal [Unknown]
  - Apathy [Unknown]
  - Tension [Unknown]
  - Abulia [Unknown]
  - Hyperhidrosis [Recovered/Resolved]
  - Weight increased [Unknown]
  - Disturbance in social behaviour [Unknown]
